FAERS Safety Report 4303567-7 (Version None)
Quarter: 2004Q1

REPORT INFORMATION
  Report Type: 
  Country: None (occurrence: None)
  Receive Date: 20040224
  Receipt Date: 20040224
  Transmission Date: 20041129
  Serious: Yes (Hospitalization)
  Sender: FDA-Public Use
  Company Number: None

PATIENT
  Age: 50 Year
  Sex: Female
  Weight: 90 kg

DRUGS (1)
  1. MERCAPTOPURINE [Suspect]
     Dosage: RETROBULBAR
     Route: 056

REACTIONS (1)
  - PANCREATITIS ACUTE [None]
